FAERS Safety Report 12486617 (Version 2)
Quarter: 2018Q1

REPORT INFORMATION
  Report Type: Report from Study
  Country: US (occurrence: US)
  Receive Date: 20160621
  Receipt Date: 20180302
  Transmission Date: 20180508
  Serious: Yes (Hospitalization, Other)
  Sender: FDA-Public Use
  Company Number: US-GILEAD-2016-0219610

PATIENT
  Age: 72 Year
  Sex: Male

DRUGS (1)
  1. RANOLAZINE. [Suspect]
     Active Substance: RANOLAZINE
     Indication: ANGINA PECTORIS
     Dosage: 1000 MG, UNK
     Route: 048
     Dates: start: 2014

REACTIONS (15)
  - Urethral perforation [Unknown]
  - Post procedural complication [Unknown]
  - Musculoskeletal disorder [Unknown]
  - Chest pain [Unknown]
  - Cardiac valve disease [Unknown]
  - Myocardial infarction [Unknown]
  - Urinary cystectomy [Unknown]
  - Pelvic operation [Unknown]
  - Radiotherapy [Unknown]
  - Post procedural haemorrhage [Unknown]
  - Colectomy [Unknown]
  - Urinary tract infection [Unknown]
  - Procedural intestinal perforation [Unknown]
  - Thrombosis [Unknown]
  - Osteomyelitis [Not Recovered/Not Resolved]

NARRATIVE: CASE EVENT DATE: 20160322
